FAERS Safety Report 8518596-7 (Version None)
Quarter: 2012Q3

REPORT INFORMATION
  Report Type: 
  Country: None (occurrence: None)
  Receive Date: 20120718
  Receipt Date: 20120529
  Transmission Date: 20120928
  Serious: Yes (Hospitalization, Other)
  Sender: FDA-Public Use
  Company Number: US-BRISTOL-MYERS SQUIBB COMPANY-15236144

PATIENT
  Age: 82 Year
  Sex: Female
  Weight: 73 kg

DRUGS (3)
  1. COZAAR [Concomitant]
  2. COUMADIN [Suspect]
     Indication: PULMONARY EMBOLISM
     Dosage: STOPPED ON AUG05 RESTARTED ON NOV09
     Dates: start: 20050401
  3. WARFARIN SODIUM [Suspect]
     Indication: PULMONARY EMBOLISM
     Dates: start: 20050401

REACTIONS (6)
  - DIVERTICULITIS [None]
  - OSTEOARTHRITIS [None]
  - RASH [None]
  - CATARACT [None]
  - PARATHYROID DISORDER [None]
  - INTERNATIONAL NORMALISED RATIO FLUCTUATION [None]
